FAERS Safety Report 5458577-3 (Version None)
Quarter: 2007Q3

REPORT INFORMATION
  Report Type: 
  Country: None (occurrence: None)
  Receive Date: 20070919
  Receipt Date: 20070410
  Transmission Date: 20080115
  Serious: Yes (Hospitalization)
  Sender: FDA-Public Use
  Company Number: US-ASTRAZENECA-2007UW06997

PATIENT
  Sex: Female

DRUGS (2)
  1. SEROQUEL [Suspect]
     Indication: BIPOLAR II DISORDER
     Route: 048
  2. SEROQUEL [Suspect]
     Dosage: 1/2 OF A 25 MG TABLET
     Route: 048

REACTIONS (4)
  - HYPOGLYCAEMIA [None]
  - LETHARGY [None]
  - SEDATION [None]
  - SOMNOLENCE [None]
